FAERS Safety Report 4514643-8 (Version None)
Quarter: 2004Q4

REPORT INFORMATION
  Report Type: 
  Country: None (occurrence: None)
  Receive Date: 20040927
  Receipt Date: 20040716
  Transmission Date: 20050328
  Serious: Yes (Life-Threatening, Hospitalization)
  Sender: FDA-Public Use
  Company Number: UK070901

PATIENT
  Age: 54 Year
  Sex: Female
  Weight: 60 kg

DRUGS (5)
  1. NEULASTA [Suspect]
     Indication: CHEMOTHERAPY
     Dosage: 1 IN 1 DAYS, SC
     Route: 058
     Dates: start: 20031115, end: 20031115
  2. DOXORUBICIN HCL [Concomitant]
  3. IFOSFAMIDE [Concomitant]
  4. MESNA [Concomitant]
  5. CISPLATIN [Concomitant]

REACTIONS (3)
  - ESCHERICHIA SEPSIS [None]
  - FEBRILE NEUTROPENIA [None]
  - LEUKOCYTOSIS [None]
